FAERS Safety Report 13772331 (Version 2)
Quarter: 2017Q3

REPORT INFORMATION
  Report Type: Spontaneous
  Country: JP (occurrence: JP)
  Receive Date: 20170720
  Receipt Date: 20170802
  Transmission Date: 20171127
  Serious: Yes (Other)
  Sender: FDA-Public Use
  Company Number: JP-LEO PHARMA-303778

PATIENT
  Age: 56 Year
  Sex: Male

DRUGS (1)
  1. PROTOPIC [Suspect]
     Active Substance: TACROLIMUS
     Indication: CUTANEOUS SARCOIDOSIS
     Route: 061

REACTIONS (2)
  - Product use in unapproved indication [Unknown]
  - Neurosarcoidosis [Recovered/Resolved]
